FAERS Safety Report 18734059 (Version 1)
Quarter: 2021Q1

REPORT INFORMATION
  Report Type: Spontaneous
  Country: US (occurrence: US)
  Receive Date: 20210113
  Receipt Date: 20210113
  Transmission Date: 20210419
  Serious: Yes (Other)
  Sender: FDA-Public Use
  Company Number: US-CIPLA LTD.-2021US00089

PATIENT

DRUGS (1)
  1. VALACYCLOVIR [Suspect]
     Active Substance: VALACYCLOVIR HYDROCHLORIDE
     Indication: HERPES ZOSTER
     Dosage: 1 GRAM, TID (THREE TIMES DAILY)
     Route: 065

REACTIONS (4)
  - Drug titration error [Unknown]
  - Neurotoxicity [Unknown]
  - Hallucination, visual [Unknown]
  - Confusional state [Unknown]
